FAERS Safety Report 7068350 (Version 2)
Quarter: 2013Q4

REPORT INFORMATION
  Report Type: Spontaneous
  Country: US (occurrence: None)
  Receive Date: 20090724
  Receipt Date: 20131231
  Transmission Date: 20140711
  Serious: Yes (Death, Other)
  Sender: FDA-Public Use
  Company Number: 2009S1005558

PATIENT
  Age: 68 Year
  Sex: Male

DRUGS (5)
  1. FLEET PHOSPHO-SODA [Suspect]
     Indication: COLONOSCOPY
     Dosage: 2 IN 24 HOURS
     Route: 048
     Dates: start: 20080306, end: 20080306
  2. ATACAND (CANDESARTAN CILEXETIL) [Concomitant]
  3. LASIX (FUROSEMIDE) [Concomitant]
  4. ATENOLOL (ATENOLOL) [Concomitant]
  5. ALLOPURINOL (ALLOPURINOL) [Concomitant]

REACTIONS (5)
  - Renal failure chronic [None]
  - Haemorrhoids [None]
  - Hypotension [None]
  - Asthenia [None]
  - Kidney enlargement [None]
